FAERS Safety Report 6987997-0 (Version None)
Quarter: 2010Q3

REPORT INFORMATION
  Report Type: 
  Country: None (occurrence: None)
  Receive Date: 20100916
  Receipt Date: 20100910
  Transmission Date: 20110219
  Serious: Yes (Hospitalization)
  Sender: FDA-Public Use
  Company Number: US-B.I. PHARMACEUTICALS,INC./RIDGEFIELD-2010-BP-10320BP

PATIENT
  Sex: Female

DRUGS (2)
  1. MIRAPEX [Suspect]
     Indication: PARKINSON'S DISEASE
     Route: 048
     Dates: start: 20100801, end: 20100801
  2. STALEVELA [Concomitant]
     Indication: PARKINSON'S DISEASE
     Dosage: 100 MG

REACTIONS (2)
  - HALLUCINATION, VISUAL [None]
  - OEDEMA PERIPHERAL [None]
